FAERS Safety Report 9437838 (Version 1)
Quarter: 2013Q3

REPORT INFORMATION
  Report Type: Spontaneous
  Country: US (occurrence: US)
  Receive Date: 20130802
  Receipt Date: 20130802
  Transmission Date: 20140515
  Serious: Yes (Other)
  Sender: FDA-Public Use
  Company Number: US-BRISTOL-MYERS SQUIBB COMPANY-18593525

PATIENT
  Age: 55 Year
  Sex: Female
  Weight: 65.8 kg

DRUGS (3)
  1. WARFARIN SODIUM [Suspect]
  2. VOLTAREN [Suspect]
     Indication: BACK PAIN
     Route: 061
  3. BAYER ASPIRIN [Suspect]
     Dates: start: 201204

REACTIONS (2)
  - Vaginal haemorrhage [Recovered/Resolved]
  - International normalised ratio increased [Unknown]
